FAERS Safety Report 9598531 (Version 2)
Quarter: 2013Q4

REPORT INFORMATION
  Report Type: Spontaneous
  Country: US (occurrence: US)
  Receive Date: 20131004
  Receipt Date: 20131004
  Transmission Date: 20140711
  Serious: No
  Sender: FDA-Public Use
  Company Number: US-AMGEN-USASP2013019448

PATIENT
  Age: 56 Year
  Sex: Female
  Weight: 59.86 kg

DRUGS (10)
  1. ENBREL [Suspect]
     Indication: RHEUMATOID ARTHRITIS
     Dosage: 25 MG, 2 TIMES/WK
     Route: 058
     Dates: end: 20130207
  2. HUMIRA [Concomitant]
     Dosage: 40 MG, UNK
  3. METOPROLOL [Concomitant]
     Dosage: 25 MG, UNK (ER)
  4. METHOTREXATE [Concomitant]
     Dosage: 2.5 MG, UNK
  5. ASPIRIN LOW [Concomitant]
     Dosage: 81 MG, UNK (EC)
  6. MULTIVITAMINS, PLAIN [Concomitant]
     Dosage: UNK
  7. VITAMIN D3 [Concomitant]
     Dosage: 1000 UNIT, UNK
  8. OMEGA 3                            /01334101/ [Concomitant]
     Dosage: UNK
  9. FOLIC ACID [Concomitant]
     Dosage: UNK
  10. CALCIUM [Concomitant]
     Dosage: UNK

REACTIONS (9)
  - Skin infection [Unknown]
  - Injection site reaction [Recovered/Resolved]
  - Injection site warmth [Recovered/Resolved]
  - Injection site urticaria [Recovered/Resolved]
  - Injection site discomfort [Recovered/Resolved]
  - Injection site erythema [Recovered/Resolved]
  - Injection site pruritus [Recovered/Resolved]
  - Injection site pain [Recovered/Resolved]
  - Nodule [Unknown]
